FAERS Safety Report 6017570-2 (Version None)
Quarter: 2008Q4

REPORT INFORMATION
  Report Type: 
  Country: None (occurrence: None)
  Receive Date: 20081223
  Receipt Date: 20081215
  Transmission Date: 20090506
  Serious: Yes (Hospitalization, Other)
  Sender: FDA-Public Use
  Company Number: US-AMGEN-QUU323963

PATIENT
  Sex: Female

DRUGS (4)
  1. ENBREL [Suspect]
     Indication: RHEUMATOID ARTHRITIS
     Dates: start: 20071001, end: 20080301
  2. PREDNISONE TAB [Concomitant]
  3. METHOTREXATE [Concomitant]
  4. REMICADE [Concomitant]
     Dates: start: 20080101

REACTIONS (5)
  - INJECTION SITE IRRITATION [None]
  - NODULE [None]
  - PNEUMONIA [None]
  - PNEUMONIA CRYPTOCOCCAL [None]
  - PULMONARY MASS [None]
